FAERS Safety Report 7963566 (Version 4)
Quarter: 2012Q4

REPORT INFORMATION
  Report Type: 
  Country: US (occurrence: US)
  Receive Date: 20110527
  Receipt Date: 20121107
  Transmission Date: 20130627
  Serious: Yes (Hospitalization, Other)
  Sender: FDA-Public Use
  Company Number: US-US-EMD SERONO, INC.-7060738

PATIENT
  Sex: Female

DRUGS (6)
  1. REBIF [Suspect]
     Indication: MULTIPLE SCLEROSIS
     Route: 058
     Dates: start: 20100219
  2. REBIF [Suspect]
     Route: 058
  3. REBIF [Suspect]
     Route: 058
  4. UNSPECIFIED BLOOD THINNERS [Concomitant]
     Indication: THROMBOSIS
  5. SPINAL INJECTIONS [Concomitant]
     Indication: ARTHRITIS
  6. SPINAL INJECTIONS [Concomitant]
     Indication: INTERVERTEBRAL DISC DEGENERATION

REACTIONS (9)
  - Kidney infection [Recovering/Resolving]
  - Pulmonary thrombosis [Unknown]
  - Vascular occlusion [Unknown]
  - Haematocrit decreased [Unknown]
  - Haemoglobin decreased [Unknown]
  - Nasopharyngitis [Unknown]
  - Injection site rash [Not Recovered/Not Resolved]
  - Injection site erythema [Unknown]
  - Injection site bruising [Not Recovered/Not Resolved]
